FAERS Safety Report 9705384 (Version 1)
Quarter: 2013Q4

REPORT INFORMATION
  Report Type: Other
  Country: GB (occurrence: GB)
  Receive Date: 20131122
  Receipt Date: 20131122
  Transmission Date: 20140711
  Serious: Yes (Life-Threatening, Hospitalization, Disabling)
  Sender: FDA-Public Use
  Company Number: GB-PERRIGO-13GB011563

PATIENT
  Sex: 0

DRUGS (20)
  1. LORAZEPAM 0.1MG/ML [Suspect]
     Indication: SEDATION
     Dosage: UNKNOWN
     Route: 048
     Dates: start: 20110523, end: 20110627
  2. LORAZEPAM 0.1MG/ML [Suspect]
     Route: 065
     Dates: start: 20110224, end: 20110410
  3. QUETIAPINE 5MG/ML [Suspect]
     Indication: PSYCHOTIC DISORDER
     Dosage: UNKNOWN
     Route: 048
     Dates: start: 20110224, end: 20110506
  4. AMITRIPTYLINE HYDROCHLORIDE 10 MG/ML 00427/0115 [Suspect]
     Dosage: 25 MG, QD
     Route: 065
     Dates: start: 20110810
  5. CLONAZEPAM 0.1MG/ML PL00427/0157 [Suspect]
     Indication: SEDATION
     Route: 048
     Dates: start: 20110224, end: 20110410
  6. DIAZEPAM 0.5MG/ML [Suspect]
     Indication: MUSCLE SPASMS
     Route: 065
     Dates: start: 20110725
  7. PROCYCLIDINE [Suspect]
     Indication: EXTRAPYRAMIDAL DISORDER
     Dosage: 5MG THREE TIMES PER DAY
     Route: 048
     Dates: start: 20110503, end: 20110510
  8. PROCYCLIDINE [Suspect]
     Indication: OCULOGYRIC CRISIS
     Route: 065
     Dates: start: 1995, end: 1996
  9. SEROXAT [Suspect]
     Indication: DEPRESSION
     Dosage: 20MG THREE TIMES PER DAY
     Route: 048
     Dates: start: 19990801, end: 201105
  10. SEROXAT [Suspect]
     Route: 048
     Dates: start: 201105, end: 20110706
  11. MIRTAZAPINE [Suspect]
     Indication: DEPRESSION
     Dosage: 30 MG, UNK
     Route: 048
     Dates: start: 20100923, end: 20101108
  12. CODEINE [Suspect]
     Indication: ANALGESIC THERAPY
     Route: 048
     Dates: start: 20110615, end: 20110723
  13. CODEINE [Suspect]
     Route: 065
     Dates: start: 2002, end: 2002
  14. CODEINE [Suspect]
     Route: 065
     Dates: start: 2008, end: 2008
  15. DOMPERIDONE [Suspect]
     Indication: PRODUCT USED FOR UNKNOWN INDICATION
     Route: 065
  16. OMEPRAZOLE [Suspect]
     Indication: DYSPEPSIA
     Dosage: 20MG PER DAY
     Route: 065
     Dates: start: 20110525
  17. PAROXETINE [Suspect]
     Indication: DEPRESSION
     Route: 048
     Dates: start: 19990801, end: 20110706
  18. PAROXETINE [Suspect]
     Indication: POST-TRAUMATIC STRESS DISORDER
  19. TRAMADOL [Suspect]
     Indication: NECK PAIN
     Route: 048
     Dates: start: 20081201, end: 20101210
  20. TRAMADOL [Suspect]
     Indication: ANALGESIC THERAPY

REACTIONS (3)
  - Serotonin syndrome [Not Recovered/Not Resolved]
  - Drug withdrawal syndrome [Unknown]
  - Drug interaction [Unknown]
